FAERS Safety Report 14690049 (Version 1)
Quarter: 2018Q1

REPORT INFORMATION
  Report Type: Report from Study
  Country: ES (occurrence: ES)
  Receive Date: 20180328
  Receipt Date: 20180328
  Transmission Date: 20180509
  Serious: Yes (Other)
  Sender: FDA-Public Use
  Company Number: ES-TEVA-2018-ES-872037

PATIENT
  Age: 64 Year
  Sex: Female

DRUGS (3)
  1. PANTOPRAZOL (7275A) [Suspect]
     Active Substance: PANTOPRAZOLE
     Dosage: 40 MG EVERY 24 HOURS
     Route: 065
     Dates: start: 20170311, end: 20170317
  2. LEVOFLOXACINO (2791A) [Suspect]
     Active Substance: LEVOFLOXACIN
     Dosage: 500 MG EVERY 12 HOURS
     Route: 065
     Dates: start: 20170311, end: 20170317
  3. PARACETAMOL (12A) [Suspect]
     Active Substance: ACETAMINOPHEN
     Dosage: 1 GR EVERY 8 HOURS
     Route: 065
     Dates: start: 20170311, end: 20170316

REACTIONS (1)
  - Hepatitis cholestatic [Recovered/Resolved]

NARRATIVE: CASE EVENT DATE: 20170314
